FAERS Safety Report 25962867 (Version 1)
Quarter: 2025Q4

REPORT INFORMATION
  Report Type: Spontaneous
  Country: US (occurrence: None)
  Receive Date: 20251026
  Receipt Date: 20251026
  Transmission Date: 20260118
  Serious: No
  Sender: FDA-CTU
  Company Number: None

PATIENT
  Age: 35 Year
  Sex: Female
  Weight: 56.7 kg

DRUGS (7)
  1. XYWAV [Suspect]
     Active Substance: CALCIUM OXYBATE\MAGNESIUM OXYBATE\POTASSIUM OXYBATE\SODIUM OXYBATE
     Indication: Hypersomnia
  2. CITALOPRAM [Concomitant]
     Active Substance: CITALOPRAM
  3. GABAPENTIN [Concomitant]
     Active Substance: GABAPENTIN
  4. ADDERALL XR [Concomitant]
     Active Substance: AMPHETAMINE ASPARTATE\AMPHETAMINE SULFATE\DEXTROAMPHETAMINE SACCHARATE\DEXTROAMPHETAMINE SULFATE
  5. IBUPROFEN [Concomitant]
     Active Substance: IBUPROFEN
  6. FISH OIL BASED SUPPLEMENT [Concomitant]
  7. CLONIDINE [Concomitant]
     Active Substance: CLONIDINE

REACTIONS (6)
  - Parkinsonism [None]
  - Tardive dyskinesia [None]
  - Dyskinesia [None]
  - Chills [None]
  - Nausea [None]
  - Tension [None]

NARRATIVE: CASE EVENT DATE: 20240101
